FAERS Safety Report 9449327 (Version 1)
Quarter: 2013Q3

REPORT INFORMATION
  Report Type: Spontaneous
  Country: DK (occurrence: CH)
  Receive Date: 20130808
  Receipt Date: 20130808
  Transmission Date: 20140515
  Serious: Yes (Hospitalization)
  Sender: FDA-Public Use
  Company Number: CH-FRI-1000047609

PATIENT
  Sex: Male
  Weight: 72 kg

DRUGS (8)
  1. CITALOPRAM [Suspect]
     Dosage: 20 MG
     Route: 048
  2. DALMADORM MITE [Suspect]
     Dosage: 15 MG
     Route: 048
  3. TOLVON [Suspect]
     Dosage: 30 MG
     Route: 048
  4. ASPIRIN CARDIO [Concomitant]
     Dosage: 100 MG
     Route: 048
  5. CRESTOR [Concomitant]
     Dosage: 5 MG
     Route: 048
  6. TOREM [Concomitant]
     Dosage: 5 MG
     Route: 048
     Dates: end: 20130520
  7. AMLODIPIN [Concomitant]
     Dosage: 5 MG
     Route: 048
  8. AMARYL [Concomitant]
     Dosage: 2 MG
     Route: 048

REACTIONS (1)
  - Fall [Recovered/Resolved]
